FAERS Safety Report 18219744 (Version 2)
Quarter: 2020Q4

REPORT INFORMATION
  Report Type: Spontaneous
  Country: US (occurrence: US)
  Receive Date: 20200901
  Receipt Date: 20201002
  Transmission Date: 20210113
  Serious: Yes (Death, Other)
  Sender: FDA-Public Use
  Company Number: US-GILEAD-2020-0492866

PATIENT
  Age: 66 Year
  Sex: Male
  Weight: 95.01 kg

DRUGS (28)
  1. CYANOCOBALAMIN. [Concomitant]
     Active Substance: CYANOCOBALAMIN
  2. OXYGEN. [Concomitant]
     Active Substance: OXYGEN
  3. REMDESIVIR. [Suspect]
     Active Substance: REMDESIVIR
     Indication: COVID-19
     Dosage: 200 MG, ONCE
     Route: 042
     Dates: start: 20200807, end: 20200807
  4. REMDESIVIR. [Suspect]
     Active Substance: REMDESIVIR
     Dosage: 100 MG, QD
     Route: 042
     Dates: start: 20200808, end: 20200810
  5. AZITHROMYCIN ANHYDROUS. [Concomitant]
     Active Substance: AZITHROMYCIN ANHYDROUS
  6. PLASMA [Concomitant]
     Active Substance: HUMAN PLASMA
  7. CEFTRIAXONE. [Concomitant]
     Active Substance: CEFTRIAXONE
  8. FENTANYL. [Concomitant]
     Active Substance: FENTANYL
  9. INSULIN LISPRO [Concomitant]
     Active Substance: INSULIN LISPRO
  10. QUETIAPINE. [Concomitant]
     Active Substance: QUETIAPINE
  11. NOREPINEPHRINE. [Concomitant]
     Active Substance: NOREPINEPHRINE
  12. PROPOFOL. [Concomitant]
     Active Substance: PROPOFOL
  13. LACTATED RINGERS SOLUTION [Concomitant]
     Active Substance: CALCIUM CHLORIDE\POTASSIUM CHLORIDE\SODIUM CHLORIDE\SODIUM LACTATE
  14. AMIODARONE [Concomitant]
     Active Substance: AMIODARONE
  15. DEXAMETHASONE. [Concomitant]
     Active Substance: DEXAMETHASONE
  16. ENOXAPARIN [Concomitant]
     Active Substance: ENOXAPARIN
  17. DEXMEDETOMIDINE. [Concomitant]
     Active Substance: DEXMEDETOMIDINE
  18. VASOPRESSIN. [Concomitant]
     Active Substance: VASOPRESSIN
  19. ASPIRIN (E.C.) [Concomitant]
     Active Substance: ASPIRIN
  20. FLUTICASONE. [Concomitant]
     Active Substance: FLUTICASONE
  21. MULTIVITAMINS [VITAMINS NOS] [Concomitant]
     Active Substance: VITAMINS
  22. BISACODYL. [Concomitant]
     Active Substance: BISACODYL
  23. PANTOPRAZOLE [Concomitant]
     Active Substance: PANTOPRAZOLE
  24. RAMELTEON [Concomitant]
     Active Substance: RAMELTEON
  25. METOPROLOL. [Concomitant]
     Active Substance: METOPROLOL
  26. PROSTACYCLIN [Concomitant]
     Active Substance: EPOPROSTENOL
  27. PERIDEX [CHLORHEXIDINE GLUCONATE] [Concomitant]
  28. THIAMINE. [Concomitant]
     Active Substance: THIAMINE

REACTIONS (1)
  - Acute respiratory failure [Fatal]
